FAERS Safety Report 6458077-8 (Version None)
Quarter: 2009Q4

REPORT INFORMATION
  Report Type: 
  Country: None (occurrence: None)
  Receive Date: 20091125
  Receipt Date: 20091119
  Transmission Date: 20100525
  Serious: Yes (Other)
  Sender: FDA-Public Use
  Company Number: US-ABBOTT-09P-163-0609638-00

PATIENT
  Sex: Female
  Weight: 49.94 kg

DRUGS (2)
  1. MERIDIA [Suspect]
     Indication: WEIGHT CONTROL
     Dates: start: 20050101, end: 20080601
  2. PROZAC [Suspect]
     Indication: DEPRESSION
     Dates: end: 20080601

REACTIONS (3)
  - CATARACT [None]
  - RETINAL VASCULAR OCCLUSION [None]
  - RETINAL VEIN OCCLUSION [None]
